FAERS Safety Report 8028827-8 (Version None)
Quarter: 2012Q1

REPORT INFORMATION
  Report Type: 
  Country: None (occurrence: None)
  Receive Date: 20120106
  Receipt Date: 20111229
  Transmission Date: 20120608
  Serious: Yes (Other)
  Sender: FDA-Public Use
  Company Number: CHPA2011US018880

PATIENT
  Age: 70 Year
  Sex: Female

DRUGS (2)
  1. EXCEDRIN PM [Suspect]
     Indication: PAIN
     Dosage: 2 DF, QHS
     Route: 048
  2. EXCEDRIN (MIGRAINE) [Suspect]
     Indication: HEADACHE
     Dosage: 2 DF, QD
     Route: 048
     Dates: start: 19900101

REACTIONS (3)
  - HYPERTENSION [None]
  - EYE HAEMORRHAGE [None]
  - VITREOUS FLOATERS [None]
